FAERS Safety Report 7558997-7 (Version None)
Quarter: 2011Q2

REPORT INFORMATION
  Report Type: 
  Country: None (occurrence: None)
  Receive Date: 20110621
  Receipt Date: 20110615
  Transmission Date: 20111010
  Serious: No
  Sender: FDA-Public Use
  Company Number: US-PFIZER INC-2011131615

PATIENT
  Sex: Female
  Weight: 86.168 kg

DRUGS (2)
  1. TOVIAZ [Suspect]
     Indication: INCONTINENCE
     Dosage: UNK
     Route: 048
     Dates: start: 20110501
  2. LITHIUM [Concomitant]
     Indication: BIPOLAR DISORDER
     Dosage: UNK

REACTIONS (2)
  - CONSTIPATION [None]
  - DYSPEPSIA [None]
